FAERS Safety Report 11024848 (Version 1)
Quarter: 2015Q2

REPORT INFORMATION
  Report Type: Spontaneous
  Country: US (occurrence: None)
  Receive Date: 20150413
  Receipt Date: 20150413
  Transmission Date: 20150821
  Serious: Yes (Hospitalization, Other)
  Sender: FDA-Public Use
  Company Number: None

PATIENT
  Age: 54 Year
  Sex: Female
  Weight: 115.67 kg

DRUGS (19)
  1. TRAMADOL [Suspect]
     Active Substance: TRAMADOL
     Indication: PAIN
     Route: 048
     Dates: start: 20130724, end: 20150211
  2. CAPSAICIN. [Concomitant]
     Active Substance: CAPSAICIN
  3. CHOLECALCIFEROL [Concomitant]
     Active Substance: CHOLECALCIFEROL
  4. DULOXETINE [Concomitant]
     Active Substance: DULOXETINE
  5. CARBOXYMETHYLCELLULOSE [Concomitant]
     Active Substance: CARBOXYMETHYLCELLULOSE
  6. VITAMIN D [Concomitant]
     Active Substance: CHOLECALCIFEROL
  7. MULTIVITAMIN WITH MINERALS [Concomitant]
     Active Substance: MINERALS\VITAMINS
  8. OMEPRAZOLE. [Concomitant]
     Active Substance: OMEPRAZOLE
  9. RIBOFLAVIN [Concomitant]
     Active Substance: RIBOFLAVIN
  10. ALBUTEROL. [Concomitant]
     Active Substance: ALBUTEROL
  11. BUDESONIDE/FORMOTEROL [Concomitant]
     Active Substance: BUDESONIDE\FORMOTEROL
  12. FLUNISOLIDE. [Concomitant]
     Active Substance: FLUNISOLIDE
  13. DICLOFENAC [Concomitant]
     Active Substance: DICLOFENAC
  14. LEVOTHYROXINE [Concomitant]
     Active Substance: LEVOTHYROXINE
  15. TRAMADOL HCL [Concomitant]
     Active Substance: TRAMADOL HYDROCHLORIDE
  16. AMLODIPINE BESYLATE. [Concomitant]
     Active Substance: AMLODIPINE BESYLATE
  17. EYELID CLEANSER [Concomitant]
  18. HCTZ [Concomitant]
     Active Substance: HYDROCHLOROTHIAZIDE
  19. LORATADINE. [Concomitant]
     Active Substance: LORATADINE

REACTIONS (3)
  - Blood sodium decreased [None]
  - Seizure [None]
  - Withdrawal syndrome [None]

NARRATIVE: CASE EVENT DATE: 20150211
